FAERS Safety Report 7346419-0 (Version None)
Quarter: 2011Q1

REPORT INFORMATION
  Report Type: 
  Country: None (occurrence: None)
  Receive Date: 20110301
  Receipt Date: 20110224
  Transmission Date: 20110831
  Serious: Yes (Hospitalization)
  Sender: FDA-Public Use
  Company Number: 1000018611

PATIENT
  Age: 80 Year
  Sex: Male

DRUGS (3)
  1. LOVASTATIN [Suspect]
     Dosage: 40 MG (40 MG, 1 IN 1 D), ORAL
     Route: 048
  2. DILTIAZEM [Suspect]
  3. ATENOLOL [Concomitant]

REACTIONS (11)
  - RENAL FAILURE ACUTE [None]
  - URINARY INCONTINENCE [None]
  - PALLOR [None]
  - RHABDOMYOLYSIS [None]
  - HYPERKALAEMIA [None]
  - COMA [None]
  - RALES [None]
  - VENOUS PRESSURE JUGULAR INCREASED [None]
  - ELECTROCARDIOGRAM T WAVE AMPLITUDE INCREASED [None]
  - DRUG INTERACTION [None]
  - BRADYCARDIA [None]
